FAERS Safety Report 18284481 (Version 1)
Quarter: 2020Q3

REPORT INFORMATION
  Report Type: Other
  Country: CA (occurrence: CA)
  Receive Date: 20200918
  Receipt Date: 20200918
  Transmission Date: 20201103
  Serious: Yes (Hospitalization, Disabling, Other)
  Sender: FDA-Public Use
  Company Number: CA-APOTEX-2020AP017977

PATIENT
  Age: 83 Year
  Sex: Female
  Weight: 79.37 kg

DRUGS (1)
  1. ALENDRONATE [Suspect]
     Active Substance: ALENDRONATE SODIUM
     Indication: OSTEOPOROSIS
     Dosage: 70 MILLIGRAM, Q.WK.
     Route: 048

REACTIONS (4)
  - Arthralgia [Recovering/Resolving]
  - Fall [Recovering/Resolving]
  - Femur fracture [Recovering/Resolving]
  - Atypical fracture [Recovering/Resolving]
